FAERS Safety Report 7712471-3 (Version None)
Quarter: 2011Q3

REPORT INFORMATION
  Report Type: 
  Country: None (occurrence: None)
  Receive Date: 20110826
  Receipt Date: 20110826
  Transmission Date: 20111222
  Serious: Yes (Disabling)
  Sender: FDA-Public Use
  Company Number: None

PATIENT
  Age: 76 Year
  Sex: Female
  Weight: 108 kg

DRUGS (1)
  1. CETACAINE [Suspect]
     Indication: ECHOCARDIOGRAM
     Dates: start: 20110823, end: 20110823

REACTIONS (3)
  - CYANOSIS [None]
  - BLOOD METHAEMOGLOBIN PRESENT [None]
  - OXYGEN SATURATION DECREASED [None]
